FAERS Safety Report 23421938 (Version 1)
Quarter: 2024Q1

REPORT INFORMATION
  Report Type: Spontaneous
  Country: US (occurrence: None)
  Receive Date: 20240118
  Receipt Date: 20240118
  Transmission Date: 20240410
  Serious: Yes (Hospitalization)
  Sender: FDA-Public Use
  Company Number: None

PATIENT
  Age: 11 Year
  Sex: Male

DRUGS (13)
  1. PERTZYE [Suspect]
     Active Substance: PANCRELIPASE AMYLASE\PANCRELIPASE LIPASE\PANCRELIPASE PROTEASE
     Indication: Cystic fibrosis
     Dosage: OTHER QUANTITY : 16000-57500UNIT ;?
     Route: 048
     Dates: start: 20220323
  2. ALBUTEROL [Concomitant]
     Active Substance: ALBUTEROL
  3. COMPLETE DROM D5000 CHEW BUBBLE [Concomitant]
  4. CYPROHEPTADINE 2MG/5ML SYRUP [Concomitant]
  5. FLOVENT HFA 110 MCG INH [Concomitant]
  6. METOCLOPRAMIDE 5 MG/5ML SYRP [Concomitant]
  7. NEBUSAL 3% 4 ML VIAL [Concomitant]
  8. NEXIUM 40 MG PACKET [Concomitant]
  9. NEXIUM DR 20 MG PACKET [Concomitant]
  10. POLYETH GLYC 3350 PWD 238GM [Concomitant]
  11. POLYETH GLYC 3350 PWD 510GM [Concomitant]
  12. SOD CHL 3% 15 ML=1 NEB [Concomitant]
  13. VITAMIN D3 50,000 UNIT CAP [Concomitant]

REACTIONS (1)
  - Pneumonia [None]

NARRATIVE: CASE EVENT DATE: 20240116
